FAERS Safety Report 10242508 (Version 1)
Quarter: 2014Q2

REPORT INFORMATION
  Report Type: Report from Study
  Country: US (occurrence: US)
  Receive Date: 20140617
  Receipt Date: 20140617
  Transmission Date: 20141212
  Serious: Yes (Hospitalization)
  Sender: FDA-Public Use
  Company Number: US-ABBVIE-14P-163-1245846-00

PATIENT
  Age: 64 Year
  Sex: Male

DRUGS (1)
  1. HUMIRA [Suspect]
     Indication: CROHN^S DISEASE
     Route: 058
     Dates: start: 20140506

REACTIONS (3)
  - Asthenia [Unknown]
  - Blood pressure abnormal [Unknown]
  - Urinary tract infection [Unknown]
